FAERS Safety Report 24244988 (Version 1)
Quarter: 2024Q3

REPORT INFORMATION
  Report Type: Spontaneous
  Country: CN (occurrence: CN)
  Receive Date: 20240823
  Receipt Date: 20240823
  Transmission Date: 20241016
  Serious: Yes (Other)
  Sender: PURDUE
  Company Number: CN-NAPPMUNDI-GBR-2024-0119073

PATIENT
  Age: 70 Year
  Sex: Male
  Weight: 50 kg

DRUGS (1)
  1. MORPHINE SULFATE [Suspect]
     Active Substance: MORPHINE SULFATE
     Indication: Analgesic therapy
     Dosage: 30 MILLIGRAM, BID
     Route: 048
     Dates: start: 20240805, end: 20240810

REACTIONS (1)
  - Dysuria [Recovering/Resolving]

NARRATIVE: CASE EVENT DATE: 20240810
